FAERS Safety Report 20092362 (Version 1)
Quarter: 2021Q4

REPORT INFORMATION
  Report Type: Spontaneous
  Country: FR (occurrence: FR)
  Receive Date: 20211119
  Receipt Date: 20211119
  Transmission Date: 20220304
  Serious: Yes (Other)
  Sender: FDA-Public Use
  Company Number: FR-FRESENIUS KABI-FK202109028

PATIENT
  Age: 48 Year
  Sex: Female

DRUGS (24)
  1. EPIRUBICIN [Suspect]
     Active Substance: EPIRUBICIN
     Indication: Breast cancer
     Dosage: UNK
     Dates: start: 20210202
  2. PACLITAXEL [Suspect]
     Active Substance: PACLITAXEL
     Indication: Product used for unknown indication
     Dosage: 100MG/16.7ML CURE 3 DAY 1, 138MG
     Route: 041
     Dates: start: 20210706
  3. PACLITAXEL [Suspect]
     Active Substance: PACLITAXEL
     Dosage: 100MG/16.7ML CURE 1 DAY 1
     Route: 041
     Dates: start: 20210525
  4. PACLITAXEL [Suspect]
     Active Substance: PACLITAXEL
     Dosage: 100MG/16.7ML CURE 3 DAY 15, 98,4MG
     Route: 041
     Dates: start: 20210720, end: 20210727
  5. PACLITAXEL [Suspect]
     Active Substance: PACLITAXEL
     Indication: Breast cancer
     Dosage: 100MG/16.7ML
     Route: 065
     Dates: start: 20210202
  6. PACLITAXEL [Suspect]
     Active Substance: PACLITAXEL
     Dosage: 100MG/16.7ML CURE 2 DAY 15, 138MG
     Route: 065
     Dates: start: 20210622
  7. PACLITAXEL [Suspect]
     Active Substance: PACLITAXEL
     Dosage: 100MG/16.7ML CURE 3 DAY 8, 138MG
     Route: 065
     Dates: start: 20210713
  8. TRASTUZUMAB [Suspect]
     Active Substance: TRASTUZUMAB
     Indication: Breast cancer
     Dosage: UNK
     Route: 065
     Dates: start: 20210525
  9. TRASTUZUMAB [Suspect]
     Active Substance: TRASTUZUMAB
     Dosage: UNK
     Route: 065
     Dates: start: 20210727
  10. TRASTUZUMAB [Suspect]
     Active Substance: TRASTUZUMAB
     Dosage: 378MG, CURE 3 DAY 1
     Route: 065
     Dates: start: 20210706
  11. EPIRUBICIN [Suspect]
     Active Substance: EPIRUBICIN
     Indication: Breast cancer
     Dosage: UNK
     Route: 065
     Dates: start: 20210202
  12. PACLITAXEL [Suspect]
     Active Substance: PACLITAXEL
     Indication: Product used for unknown indication
     Dosage: 100MG/16.7ML CURE 3 DAY 1, 138MG
     Route: 041
     Dates: start: 20210706
  13. PACLITAXEL [Suspect]
     Active Substance: PACLITAXEL
     Dosage: 100MG/16.7ML CURE 1 DAY 1
     Route: 041
     Dates: start: 20210525
  14. PACLITAXEL [Suspect]
     Active Substance: PACLITAXEL
     Dosage: 100MG/16.7ML CURE 3 DAY 15, 98,4MG
     Route: 041
     Dates: start: 20210720, end: 20210727
  15. PACLITAXEL [Suspect]
     Active Substance: PACLITAXEL
     Indication: Breast cancer
     Dosage: 100MG/16.7ML
     Route: 065
     Dates: start: 20210202
  16. PACLITAXEL [Suspect]
     Active Substance: PACLITAXEL
     Dosage: 100MG/16.7ML CURE 2 DAY 15, 138MG
     Route: 065
     Dates: start: 20210622
  17. PACLITAXEL [Suspect]
     Active Substance: PACLITAXEL
     Dosage: 100MG/16.7ML CURE 3 DAY 8, 138MG
     Route: 065
     Dates: start: 20210713
  18. CYTARABINE [Suspect]
     Active Substance: CYTARABINE
     Indication: Breast cancer
     Dosage: UNK
     Route: 065
     Dates: start: 20210202
  19. TRASTUZUMAB [Suspect]
     Active Substance: TRASTUZUMAB
     Indication: Breast cancer
     Dosage: UNK
     Route: 065
     Dates: start: 20210525
  20. TRASTUZUMAB [Suspect]
     Active Substance: TRASTUZUMAB
     Dosage: UNK
     Route: 065
     Dates: start: 20210727
  21. TRASTUZUMAB [Suspect]
     Active Substance: TRASTUZUMAB
     Dosage: 378MG, CURE 3 DAY 1
     Route: 065
     Dates: start: 20210706
  22. PERTUZUMAB [Suspect]
     Active Substance: PERTUZUMAB
     Indication: Breast cancer
     Dosage: CURE 3 DAY 1, 420MG
     Route: 065
     Dates: start: 20210706
  23. PERTUZUMAB [Suspect]
     Active Substance: PERTUZUMAB
     Dosage: UNK
     Route: 065
     Dates: start: 20210727
  24. PERTUZUMAB [Suspect]
     Active Substance: PERTUZUMAB
     Dosage: UNK
     Route: 065
     Dates: start: 20210525

REACTIONS (9)
  - Conjunctivitis [Unknown]
  - Epistaxis [Recovered/Resolved]
  - Diarrhoea [Unknown]
  - Skin abrasion [Unknown]
  - Oedema peripheral [Unknown]
  - Neuropathy peripheral [Not Recovered/Not Resolved]
  - Constipation [Unknown]
  - Paraesthesia [Unknown]
  - Oesophagitis [Unknown]

NARRATIVE: CASE EVENT DATE: 20210622
